FAERS Safety Report 10036159 (Version 1)
Quarter: 2014Q1

REPORT INFORMATION
  Report Type: Spontaneous
  Country: US (occurrence: None)
  Receive Date: 20140306
  Receipt Date: 20140306
  Transmission Date: 20141002
  Serious: Yes (Other)
  Sender: FDA-Public Use
  Company Number: 163-21880-13120779

PATIENT
  Age: 74 Year
  Sex: Male

DRUGS (4)
  1. REVLIMID [Suspect]
     Indication: PLASMA CELL MYELOMA
     Dosage: 20 MG, 21 IN 21 D, PO
     Route: 048
     Dates: start: 20131011
  2. PREDNISONE (PREDNISONE) [Concomitant]
  3. PROTONIX [Concomitant]
  4. JANUVIA (SITAGLIPTIN PHOSPHATE) [Concomitant]

REACTIONS (1)
  - Visual impairment [None]
